FAERS Safety Report 14664987 (Version 14)
Quarter: 2018Q3

REPORT INFORMATION
  Report Type: Report from Study
  Country: DE (occurrence: DE)
  Receive Date: 20180321
  Receipt Date: 20180911
  Transmission Date: 20181010
  Serious: Yes (Hospitalization, Other)
  Sender: FDA-Public Use
  Company Number: PHHY2018DE048761

PATIENT
  Age: 15 Year
  Sex: Male
  Weight: 106 kg

DRUGS (29)
  1. FOLIC ACID. [Concomitant]
     Active Substance: FOLIC ACID
     Indication: STILL^S DISEASE
     Dosage: 5 MG, UNK
     Route: 048
  2. ETORICOXIB. [Concomitant]
     Active Substance: ETORICOXIB
     Indication: JUVENILE IDIOPATHIC ARTHRITIS
     Dosage: UNK
     Route: 048
  3. ETORICOXIB. [Concomitant]
     Active Substance: ETORICOXIB
     Route: 048
  4. METHOTREXATE. [Suspect]
     Active Substance: METHOTREXATE
     Indication: STILL^S DISEASE
     Dosage: 20 MG, QW
     Route: 048
     Dates: start: 20141204
  5. ARCOXIA [Concomitant]
     Active Substance: ETORICOXIB
     Indication: STILL^S DISEASE
     Dosage: 90 MG, QD
     Route: 065
  6. FOLSAEURE [Concomitant]
     Active Substance: FOLIC ACID
     Indication: STILL^S DISEASE
     Dosage: 5 MG, UNK
     Route: 048
  7. TOPIRAMAT [Concomitant]
     Active Substance: TOPIRAMATE
     Indication: EPILEPSY
     Dosage: DAILY DOSE: 200 MG MILLGRAM(S) EVERY DAYS
     Route: 048
  8. OXCARBAZEPINE. [Concomitant]
     Active Substance: OXCARBAZEPINE
     Dosage: 1200 MG, UNK
     Route: 065
  9. OXCARBAZEPIN [Concomitant]
     Active Substance: OXCARBAZEPINE
     Dosage: 1500 MG, UNK
     Route: 048
  10. ROACTEMRA [Suspect]
     Active Substance: TOCILIZUMAB
     Dosage: 640 MG, Q2W
     Route: 042
     Dates: start: 20150428
  11. FOLSAURE [Concomitant]
     Active Substance: FOLIC ACID
     Indication: STILL^S DISEASE
     Route: 048
  12. OXCARBAZEPIN [Concomitant]
     Active Substance: OXCARBAZEPINE
     Route: 065
  13. OXCARBAZEPIN [Concomitant]
     Active Substance: OXCARBAZEPINE
     Dosage: 1200 MG, UNK
     Route: 065
  14. PANTOPRAZOLE [Suspect]
     Active Substance: PANTOPRAZOLE
     Indication: STILL^S DISEASE
     Dosage: 80 MG, UNK
     Route: 065
  15. PREDNISONE. [Suspect]
     Active Substance: PREDNISONE
     Indication: STILL^S DISEASE
     Dosage: 7.5 MG, UNK
     Route: 065
  16. ETORICOXIB. [Concomitant]
     Active Substance: ETORICOXIB
     Indication: STILL^S DISEASE
     Dosage: 90 MG, QD
     Route: 048
  17. OXCARBAZEPIN [Concomitant]
     Active Substance: OXCARBAZEPINE
     Indication: EPILEPSY
     Route: 048
  18. OMEPRAZOLE. [Concomitant]
     Active Substance: OMEPRAZOLE
     Indication: STILL^S DISEASE
     Dosage: UNK
     Route: 048
  19. ARCOXIA [Concomitant]
     Active Substance: ETORICOXIB
     Dosage: DAILY DOSE: 90 MG MILLGRAM(S) EVERY DAYS
     Route: 065
  20. ETORICOXIB. [Concomitant]
     Active Substance: ETORICOXIB
     Dosage: 90 MG, QD
     Route: 048
     Dates: start: 20160403
  21. OXCARBAZEPINE. [Concomitant]
     Active Substance: OXCARBAZEPINE
     Indication: EPILEPSY
     Dosage: 1500 MG, UNK
     Route: 048
  22. VOLTAREN [Suspect]
     Active Substance: DICLOFENAC SODIUM
     Indication: STILL^S DISEASE
     Dosage: 100 MG, QD
     Route: 048
     Dates: start: 20141217, end: 20150113
  23. PANTOPRAZOLE [Suspect]
     Active Substance: PANTOPRAZOLE
     Dosage: 40 MG, UNK
     Route: 065
  24. ROACTEMRA [Suspect]
     Active Substance: TOCILIZUMAB
     Indication: STILL^S DISEASE
     Dosage: 640 MG, Q2W
     Route: 042
     Dates: start: 20141217
  25. ROACTEMRA [Suspect]
     Active Substance: TOCILIZUMAB
     Dosage: 640 MG, Q2W
     Route: 042
  26. FOLIC ACID. [Concomitant]
     Active Substance: FOLIC ACID
     Dosage: UNK
     Route: 065
  27. ETORICOXIB. [Concomitant]
     Active Substance: ETORICOXIB
     Route: 048
  28. PERAMPANEL [Concomitant]
     Active Substance: PERAMPANEL
     Indication: STILL^S DISEASE
     Dosage: 8 MG, UNK
     Route: 048
  29. OMEPRAZOL [Concomitant]
     Active Substance: OMEPRAZOLE
     Indication: STILL^S DISEASE
     Route: 048

REACTIONS (10)
  - Otitis media [Recovered/Resolved]
  - Hand fracture [Unknown]
  - Epilepsy [Recovered/Resolved]
  - Fall [Unknown]
  - Epilepsy [Recovered/Resolved]
  - Pneumonia aspiration [Recovered/Resolved]
  - Seizure [Recovered/Resolved]
  - Sinusitis [Recovered/Resolved]
  - Epilepsy [Recovered/Resolved]
  - Craniocerebral injury [Unknown]

NARRATIVE: CASE EVENT DATE: 20150417
